FAERS Safety Report 7674047 (Version 2)
Quarter: 2012Q4

REPORT INFORMATION
  Report Type: 
  Country: US (occurrence: US)
  Receive Date: 20101118
  Receipt Date: 20121029
  Transmission Date: 20130627
  Serious: Yes (Other)
  Sender: FDA-Public Use
  Company Number: US-ROCHE-720581

PATIENT
  Age: 16 Year
  Sex: Male
  Weight: 70.3 kg

DRUGS (2)
  1. ACCUTANE [Suspect]
     Indication: ACNE
     Route: 065
     Dates: start: 199906, end: 199912
  2. RETIN A CREAM [Concomitant]
     Route: 061

REACTIONS (9)
  - Crohn^s disease [Unknown]
  - Nausea [Unknown]
  - Abdominal pain [Unknown]
  - Rectal haemorrhage [Unknown]
  - Pilonidal cyst [Unknown]
  - Large intestinal ulcer [Unknown]
  - Lip dry [Recovering/Resolving]
  - Erythema [Recovering/Resolving]
  - Dry skin [Unknown]
